FAERS Safety Report 10150424 (Version 3)
Quarter: 2014Q2

REPORT INFORMATION
  Report Type: Spontaneous
  Country: CO (occurrence: CO)
  Receive Date: 20140502
  Receipt Date: 20140627
  Transmission Date: 20141212
  Serious: Yes (Other)
  Sender: FDA-Public Use
  Company Number: CO-VERTEX PHARMACEUTICALS INC-2014-002157

PATIENT
  Age: 70 Year
  Sex: Female
  Weight: 49 kg

DRUGS (5)
  1. INCIVO [Suspect]
     Indication: CHRONIC HEPATITIS C
     Dosage: 375 MG, 6 TIMES A DAY
     Route: 048
     Dates: start: 20140207, end: 20140502
  2. RIBAVIRIN [Concomitant]
     Indication: CHRONIC HEPATITIS C
     Dosage: 600 MG, QD
     Route: 048
     Dates: start: 20140423
  3. RIBAVIRIN [Concomitant]
     Dosage: 200 MG, 5 TIMES A DAY
     Route: 048
     Dates: start: 20140207, end: 20140423
  4. RIBAVIRIN [Concomitant]
     Dosage: 200 MG, 4 TIMES A DAY
     Route: 048
  5. PEGINTERFERON [Concomitant]
     Indication: CHRONIC HEPATITIS C
     Dosage: 180 ?G, UNK
     Route: 058
     Dates: start: 20140207

REACTIONS (3)
  - Urinary tract infection [Unknown]
  - Neutrophil count decreased [Unknown]
  - Oedema peripheral [Unknown]
